FAERS Safety Report 8977000 (Version 2)
Quarter: 2012Q4

REPORT INFORMATION
  Report Type: 
  Country: US (occurrence: US)
  Receive Date: 20121220
  Receipt Date: 20121228
  Transmission Date: 20130627
  Serious: Yes (Hospitalization)
  Sender: FDA-Public Use
  Company Number: US-ACTELION-A-US2012-76300

PATIENT
  Age: 66 Year
  Sex: Female

DRUGS (9)
  1. TRACLEER [Suspect]
     Indication: PULMONARY ARTERIAL HYPERTENSION
     Dosage: 125 mg, bid
     Route: 048
     Dates: start: 2000
  2. CADUET [Concomitant]
  3. ALDACTONE [Concomitant]
  4. COUMADIN [Concomitant]
  5. LOSARTAN [Concomitant]
  6. TOPROL [Concomitant]
  7. IRON [Concomitant]
  8. BABY ASPIRIN [Concomitant]
  9. VITAMIN B12 [Concomitant]

REACTIONS (6)
  - Gastrointestinal haemorrhage [Recovered/Resolved with Sequelae]
  - Anaemia [Recovered/Resolved with Sequelae]
  - Transfusion [Recovered/Resolved with Sequelae]
  - Gastric ulcer [Recovered/Resolved with Sequelae]
  - Haemorrhoids [Recovered/Resolved with Sequelae]
  - Disease recurrence [None]
